FAERS Safety Report 7350490-X (Version None)
Quarter: 2011Q1

REPORT INFORMATION
  Report Type: 
  Country: None (occurrence: None)
  Receive Date: 20110303
  Receipt Date: 20110222
  Transmission Date: 20110831
  Serious: Yes (Disabling, Other)
  Sender: FDA-Public Use
  Company Number: 841250

PATIENT
  Age: 52 Year
  Sex: Female

DRUGS (3)
  1. OXALIPLATIN [Suspect]
     Indication: COLORECTAL CANCER
  2. FLUOROURACIL [Concomitant]
  3. (LEUCOVORIN /00566701/) [Concomitant]

REACTIONS (7)
  - RETINAL DEGENERATION [None]
  - SCOTOMA [None]
  - VISION BLURRED [None]
  - BLINDNESS [None]
  - COLOUR VISION TESTS ABNORMAL [None]
  - NEUROTOXICITY [None]
  - OCULAR TOXICITY [None]
